FAERS Safety Report 6305508-X (Version None)
Quarter: 2009Q3

REPORT INFORMATION
  Report Type: 
  Country: None (occurrence: None)
  Receive Date: 20090811
  Receipt Date: 20090803
  Transmission Date: 20100115
  Serious: Yes (Hospitalization, Other)
  Sender: FDA-Public Use
  Company Number: JP-ABBOTT-09P-087-0588962-00

PATIENT
  Sex: Male

DRUGS (4)
  1. NORVIR [Suspect]
     Indication: HIV INFECTION
     Dosage: 200 MG DAILY
     Route: 048
     Dates: start: 20080401
  2. RETROVIR [Suspect]
     Indication: HIV INFECTION
     Dosage: 400 MG DAILY
     Route: 048
     Dates: start: 20080401
  3. LEXIVA [Suspect]
     Indication: HIV INFECTION
     Route: 048
     Dates: start: 20080401
  4. TRUVADA [Suspect]
     Indication: HIV INFECTION
     Dosage: ONE TABLET DAILY
     Route: 048
     Dates: start: 20080401

REACTIONS (1)
  - OSTEOMA [None]
